FAERS Safety Report 4708917-5 (Version None)
Quarter: 2005Q3

REPORT INFORMATION
  Report Type: 
  Country: None (occurrence: None)
  Receive Date: 20050707
  Receipt Date: 20050622
  Transmission Date: 20060218
  Serious: Yes (Other)
  Sender: FDA-Public Use
  Company Number: JP-MERCK-0506USA03440

PATIENT

DRUGS (2)
  1. DECADRON [Suspect]
     Route: 048
  2. THALIDOMIDE [Suspect]
     Route: 065

REACTIONS (2)
  - DEEP VEIN THROMBOSIS [None]
  - PULMONARY EMBOLISM [None]
